FAERS Safety Report 9498516 (Version 1)
Quarter: 2013Q3

REPORT INFORMATION
  Report Type: Spontaneous
  Country: US (occurrence: US)
  Receive Date: 20130904
  Receipt Date: 20130904
  Transmission Date: 20140515
  Serious: Yes (Other)
  Sender: FDA-Public Use
  Company Number: US-UCBSA-096228

PATIENT
  Sex: 0

DRUGS (1)
  1. CIMZIA [Suspect]
     Route: 058
     Dates: start: 2008

REACTIONS (4)
  - Lupus-like syndrome [Unknown]
  - Arthralgia [Unknown]
  - Influenza like illness [Unknown]
  - Drug effect decreased [Unknown]
